FAERS Safety Report 4859090-4 (Version None)
Quarter: 2005Q4

REPORT INFORMATION
  Report Type: 
  Country: None (occurrence: None)
  Receive Date: 20051219
  Receipt Date: 20050913
  Transmission Date: 20060501
  Serious: No
  Sender: FDA-Public Use
  Company Number: US-GLAXOSMITHKLINE-A0574205A

PATIENT
  Sex: Male

DRUGS (3)
  1. NICODERM CQ [Suspect]
  2. NICORETTE [Suspect]
  3. NICORETTE OTC GUM, ORIGINAL [Suspect]

REACTIONS (3)
  - INTENTIONAL DRUG MISUSE [None]
  - NO ADVERSE DRUG EFFECT [None]
  - TOOTHACHE [None]
